FAERS Safety Report 8315489-5 (Version None)
Quarter: 2012Q2

REPORT INFORMATION
  Report Type: 
  Country: None (occurrence: None)
  Receive Date: 20120426
  Receipt Date: 20120411
  Transmission Date: 20120825
  Serious: Yes (Disabling, Other)
  Sender: FDA-Public Use
  Company Number: CHPA2012US009217

PATIENT
  Sex: Male

DRUGS (3)
  1. CRESTOR [Suspect]
     Dosage: 5 MG, QD
     Route: 048
  2. ACETYLSALICYLIC ACID SRT [Suspect]
     Dosage: 2 DF IN THE MORNING, 1 DF AT BEDTIME
  3. EXCEDRIN EXTRA STRENGTH TABLETS [Suspect]
     Indication: HEADACHE
     Dosage: 3 DF, QD
     Route: 048
     Dates: start: 19890101

REACTIONS (11)
  - BLINDNESS [None]
  - BALANCE DISORDER [None]
  - FALL [None]
  - INCORRECT DRUG ADMINISTRATION DURATION [None]
  - UNDERDOSE [None]
  - CEREBROVASCULAR ACCIDENT [None]
  - HYPOKINESIA [None]
  - ARTHRALGIA [None]
  - HEADACHE [None]
  - BACK PAIN [None]
  - HYPOACUSIS [None]
